FAERS Safety Report 19969312 (Version 10)
Quarter: 2022Q2

REPORT INFORMATION
  Report Type: Spontaneous
  Country: PL (occurrence: PL)
  Receive Date: 20211019
  Receipt Date: 20220608
  Transmission Date: 20220720
  Serious: Yes (Other)
  Sender: FDA-Public Use
  Company Number: PL-002147023-NVSC2021PL217368

PATIENT
  Age: 64 Year
  Sex: Male

DRUGS (34)
  1. EZETIMIBE [Suspect]
     Active Substance: EZETIMIBE
     Indication: Product used for unknown indication
     Dosage: 10 MG
     Route: 065
  2. DAPAGLIFLOZIN [Suspect]
     Active Substance: DAPAGLIFLOZIN
     Indication: Product used for unknown indication
     Dosage: 10 MG
     Route: 065
  3. DAPAGLIFLOZIN [Suspect]
     Active Substance: DAPAGLIFLOZIN
     Dosage: 10 MG
     Route: 048
  4. EPLERENONE [Suspect]
     Active Substance: EPLERENONE
     Indication: Product used for unknown indication
     Dosage: UNK
     Route: 065
  5. EPLERENONE [Suspect]
     Active Substance: EPLERENONE
     Dosage: UNK
  6. EPLERENONE [Suspect]
     Active Substance: EPLERENONE
     Dosage: UNK
     Route: 065
  7. TORSEMIDE [Suspect]
     Active Substance: TORSEMIDE
     Indication: Product used for unknown indication
     Dosage: 20 MILLIGRAM, QD
     Route: 065
  8. ALLOPURINOL [Suspect]
     Active Substance: ALLOPURINOL
     Indication: Product used for unknown indication
     Dosage: 100 MG
     Route: 065
  9. SACUBITRIL\VALSARTAN [Suspect]
     Active Substance: SACUBITRIL\VALSARTAN
     Indication: Cardiac failure
     Dosage: UNK, BID, 24/26
     Route: 065
  10. SACUBITRIL\VALSARTAN [Suspect]
     Active Substance: SACUBITRIL\VALSARTAN
     Dosage: 49/51, Q12H
     Route: 065
  11. SACUBITRIL\VALSARTAN [Suspect]
     Active Substance: SACUBITRIL\VALSARTAN
     Dosage: 24/26,Q12H
     Route: 065
  12. SACUBITRIL\VALSARTAN [Suspect]
     Active Substance: SACUBITRIL\VALSARTAN
     Dosage: 49/51, Q12H
     Route: 065
  13. SACUBITRIL\VALSARTAN [Suspect]
     Active Substance: SACUBITRIL\VALSARTAN
     Dosage: UNK
     Route: 065
  14. CARVEDILOL [Suspect]
     Active Substance: CARVEDILOL
     Indication: Product used for unknown indication
     Dosage: 25-0-12.5 MG
     Route: 065
  15. CARVEDILOL [Suspect]
     Active Substance: CARVEDILOL
     Dosage: 12.5, BID
     Route: 065
  16. CARVEDILOL [Suspect]
     Active Substance: CARVEDILOL
     Dosage: 12.5 MG, 2X/DAY
  17. CARVEDILOL [Suspect]
     Active Substance: CARVEDILOL
     Dosage: 25-0-12.5 MG
     Route: 065
  18. CARVEDILOL [Suspect]
     Active Substance: CARVEDILOL
     Dosage: 2X12.5, Q12H
     Route: 065
  19. CARVEDILOL [Suspect]
     Active Substance: CARVEDILOL
     Dosage: 100 MILLIGRAM
     Route: 065
  20. METFORMIN [Suspect]
     Active Substance: METFORMIN HYDROCHLORIDE
     Indication: Product used for unknown indication
     Dosage: 1700 MILLIGRAM, QD
     Route: 065
  21. METFORMIN [Suspect]
     Active Substance: METFORMIN HYDROCHLORIDE
     Dosage: 850 MILLIGRAM, Q12H
     Route: 065
  22. ATORVASTATIN [Suspect]
     Active Substance: ATORVASTATIN
     Indication: Product used for unknown indication
     Dosage: 20 MG
     Route: 065
  23. SPIRONOLACTONE AND HYDROCHLOROTHIAZIDE [Suspect]
     Active Substance: HYDROCHLOROTHIAZIDE\SPIRONOLACTONE
     Indication: Product used for unknown indication
     Dosage: UNK
     Route: 065
  24. ASPIRIN [Suspect]
     Active Substance: ASPIRIN
     Indication: Product used for unknown indication
     Dosage: 10 MG,MEDICINAL PRODUCT: ASA
     Route: 065
  25. ASPIRIN [Suspect]
     Active Substance: ASPIRIN
     Dosage: 100 MG,MEDICINAL PRODUCT: ASA
     Route: 065
  26. RAMIPRIL [Suspect]
     Active Substance: RAMIPRIL
     Indication: Product used for unknown indication
     Dosage: 5 MILLIGRAM, BID
     Route: 065
  27. RAMIPRIL [Suspect]
     Active Substance: RAMIPRIL
     Dosage: 5 MG, 2X/DAY
  28. RAMIPRIL [Suspect]
     Active Substance: RAMIPRIL
     Dosage: 5 MILLIGRAM, Q12H
     Route: 065
  29. RAMIPRIL [Suspect]
     Active Substance: RAMIPRIL
     Dosage: 5 MG, Q12H
     Route: 065
  30. RAMIPRIL [Suspect]
     Active Substance: RAMIPRIL
     Dosage: 2X5MG
  31. RAMIPRIL [Suspect]
     Active Substance: RAMIPRIL
     Dosage: 2.5 MILLIGRAM, QD
     Route: 065
  32. CARVEDILOL [Suspect]
     Active Substance: CARVEDILOL
     Indication: Product used for unknown indication
     Dosage: DOSE TEXT: 25-0-12.5 MG
     Route: 065
  33. CARVEDILOL [Suspect]
     Active Substance: CARVEDILOL
     Dosage: 12.5 MG, BID
  34. SPIRONOLACTONE [Suspect]
     Active Substance: SPIRONOLACTONE
     Indication: Product used for unknown indication
     Dosage: UNK

REACTIONS (10)
  - Abdominal distension [Unknown]
  - Diabetes mellitus [Unknown]
  - Non-alcoholic fatty liver [Unknown]
  - Hypertension [Unknown]
  - Blood pressure decreased [Unknown]
  - Type V hyperlipidaemia [Unknown]
  - Obesity [Unknown]
  - Hyperuricaemia [Unknown]
  - Fatigue [Unknown]
  - Oedema peripheral [Unknown]
